FAERS Safety Report 7514987-1 (Version None)
Quarter: 2011Q2

REPORT INFORMATION
  Report Type: 
  Country: None (occurrence: None)
  Receive Date: 20110601
  Receipt Date: 20110518
  Transmission Date: 20111010
  Serious: Yes (Other)
  Sender: FDA-Public Use
  Company Number: PHHY2011JP20324

PATIENT
  Sex: Female

DRUGS (10)
  1. MOBIC [Concomitant]
     Dosage: 10 MG, UNK
     Route: 048
  2. ASPARA [Concomitant]
     Dosage: 200 MG, UNK
     Route: 048
  3. CARVEDILOL [Concomitant]
     Dosage: 2.5 MG, UNK
     Route: 048
     Dates: start: 20100810
  4. BREDININ [Suspect]
     Dosage: 150 MG, QD
     Route: 048
  5. CANDESARTAN CILEXETIL [Concomitant]
     Dosage: 8 MG, UNK
     Route: 048
  6. TASIGNA [Suspect]
     Indication: CHRONIC MYELOID LEUKAEMIA
     Dosage: 400 MG, QD
     Route: 048
     Dates: start: 20100713, end: 20100928
  7. TASIGNA [Suspect]
     Dosage: 400 MG, QD
     Route: 048
     Dates: start: 20101019
  8. PREDNISOLONE [Concomitant]
     Dosage: 4 MG, QD
     Route: 048
  9. ALFAROL [Concomitant]
     Dosage: 0.5 UG, UNK
     Route: 048
  10. ADALAT CC [Concomitant]
     Dosage: 60 MG, UNK
     Route: 048

REACTIONS (2)
  - PANCREATIC ENZYMES INCREASED [None]
  - HYPERURICAEMIA [None]
